FAERS Safety Report 23703818 (Version 1)
Quarter: 2024Q2

REPORT INFORMATION
  Report Type: Spontaneous
  Country: US (occurrence: US)
  Receive Date: 20240403
  Receipt Date: 20240403
  Transmission Date: 20240716
  Serious: Yes (Other)
  Sender: FDA-Public Use
  Company Number: US-TAKEDA-2024TUS030601

PATIENT
  Sex: Male
  Weight: 31.746 kg

DRUGS (4)
  1. DEXILANT [Suspect]
     Active Substance: DEXLANSOPRAZOLE
     Indication: Gastrooesophageal reflux disease
     Dosage: 60 MILLIGRAM, QD
     Route: 065
     Dates: start: 201211
  2. GUANFACINE [Concomitant]
     Active Substance: GUANFACINE
     Dosage: 3.5 MILLIGRAM, QD
  3. METHYLPHENIDATE [Concomitant]
     Active Substance: METHYLPHENIDATE
     Dosage: 30 MILLIGRAM, QD
  4. ZYRTEC [Concomitant]
     Active Substance: CETIRIZINE HYDROCHLORIDE
     Dosage: UNK

REACTIONS (4)
  - Growth retardation [Unknown]
  - Microcephaly [Unknown]
  - Low birth weight baby [Unknown]
  - Premature baby [Unknown]
